FAERS Safety Report 4733208-6 (Version None)
Quarter: 2005Q3

REPORT INFORMATION
  Report Type: 
  Country: None (occurrence: None)
  Receive Date: 20050801
  Receipt Date: 20050801
  Transmission Date: 20060218
  Serious: Yes (Hospitalization)
  Sender: FDA-Public Use
  Company Number: None

PATIENT
  Age: 67 Year
  Sex: Male

DRUGS (8)
  1. METOLAZONE [Suspect]
     Indication: HYPERTENSION
     Dosage: 2.5 MG BID
     Dates: start: 20030716
  2. FUROSEMIDE [Suspect]
     Indication: HYPERTENSION
     Dosage: 120 MG TID
     Dates: start: 20020517
  3. PLAVIX [Concomitant]
  4. COLCHICINE [Concomitant]
  5. IRBESARTAN [Concomitant]
  6. METOPROLOL [Concomitant]
  7. ALLOPURINOL [Concomitant]
  8. TERAZOSIN [Concomitant]

REACTIONS (1)
  - RENAL FAILURE ACUTE [None]
